FAERS Safety Report 22674211 (Version 9)
Quarter: 2025Q2

REPORT INFORMATION
  Report Type: Spontaneous
  Country: NL (occurrence: NL)
  Receive Date: 20230705
  Receipt Date: 20250514
  Transmission Date: 20250716
  Serious: Yes (Other)
  Sender: MYLAN
  Company Number: NL-OTSUKA-2023_015693

PATIENT
  Age: 9 Year
  Sex: Male

DRUGS (52)
  1. GRANISETRON [Suspect]
     Active Substance: GRANISETRON
     Indication: Nausea
  2. GRANISETRON [Suspect]
     Active Substance: GRANISETRON
     Route: 048
  3. GRANISETRON [Suspect]
     Active Substance: GRANISETRON
     Route: 048
  4. GRANISETRON [Suspect]
     Active Substance: GRANISETRON
  5. FLUTICASONE [Suspect]
     Active Substance: FLUTICASONE
     Indication: Asthma
  6. FLUTICASONE [Suspect]
     Active Substance: FLUTICASONE
     Route: 045
  7. FLUTICASONE [Suspect]
     Active Substance: FLUTICASONE
     Route: 045
  8. FLUTICASONE [Suspect]
     Active Substance: FLUTICASONE
  9. ARIPIPRAZOLE [Suspect]
     Active Substance: ARIPIPRAZOLE
     Indication: Autism spectrum disorder
  10. ARIPIPRAZOLE [Suspect]
     Active Substance: ARIPIPRAZOLE
     Route: 048
  11. ARIPIPRAZOLE [Suspect]
     Active Substance: ARIPIPRAZOLE
     Route: 048
  12. ARIPIPRAZOLE [Suspect]
     Active Substance: ARIPIPRAZOLE
  13. DESLORATADINE [Suspect]
     Active Substance: DESLORATADINE
     Indication: Asthma
  14. DESLORATADINE [Suspect]
     Active Substance: DESLORATADINE
     Route: 048
  15. DESLORATADINE [Suspect]
     Active Substance: DESLORATADINE
     Route: 048
  16. DESLORATADINE [Suspect]
     Active Substance: DESLORATADINE
  17. BECLOMETHASONE DIPROPIONATE [Suspect]
     Active Substance: BECLOMETHASONE DIPROPIONATE
     Indication: Asthma
     Dosage: 2 DOSAGE FORM, BID (4 DOSAGE FORM, QD)
     Dates: start: 20230320
  18. BECLOMETHASONE DIPROPIONATE [Suspect]
     Active Substance: BECLOMETHASONE DIPROPIONATE
     Dosage: 2 DOSAGE FORM, BID (4 DOSAGE FORM, QD)
     Route: 055
     Dates: start: 20230320
  19. BECLOMETHASONE DIPROPIONATE [Suspect]
     Active Substance: BECLOMETHASONE DIPROPIONATE
     Dosage: 2 DOSAGE FORM, BID (4 DOSAGE FORM, QD)
     Route: 055
     Dates: start: 20230320
  20. BECLOMETHASONE DIPROPIONATE [Suspect]
     Active Substance: BECLOMETHASONE DIPROPIONATE
     Dosage: 2 DOSAGE FORM, BID (4 DOSAGE FORM, QD)
     Dates: start: 20230320
  21. ALBUTEROL [Suspect]
     Active Substance: ALBUTEROL
     Indication: Asthma
  22. ALBUTEROL [Suspect]
     Active Substance: ALBUTEROL
     Route: 055
  23. ALBUTEROL [Suspect]
     Active Substance: ALBUTEROL
     Route: 055
  24. ALBUTEROL [Suspect]
     Active Substance: ALBUTEROL
  25. POLYETHYLENE GLYCOLS [Suspect]
     Active Substance: POLYETHYLENE GLYCOLS
     Indication: Constipation
  26. POLYETHYLENE GLYCOLS [Suspect]
     Active Substance: POLYETHYLENE GLYCOLS
     Route: 048
  27. POLYETHYLENE GLYCOLS [Suspect]
     Active Substance: POLYETHYLENE GLYCOLS
     Route: 048
  28. POLYETHYLENE GLYCOLS [Suspect]
     Active Substance: POLYETHYLENE GLYCOLS
  29. MELATONIN [Suspect]
     Active Substance: MELATONIN
     Indication: Autism spectrum disorder
  30. MELATONIN [Suspect]
     Active Substance: MELATONIN
     Route: 048
  31. MELATONIN [Suspect]
     Active Substance: MELATONIN
     Route: 048
  32. MELATONIN [Suspect]
     Active Substance: MELATONIN
  33. CRIZOTINIB [Suspect]
     Active Substance: CRIZOTINIB
     Indication: Neoplasm malignant
     Dosage: 220 MILLIGRAM, BID
     Route: 048
     Dates: start: 20230211, end: 20230523
  34. CRIZOTINIB [Suspect]
     Active Substance: CRIZOTINIB
     Dosage: 220 MILLIGRAM, BID
     Dates: start: 20230211, end: 20230523
  35. CRIZOTINIB [Suspect]
     Active Substance: CRIZOTINIB
     Dosage: 220 MILLIGRAM, BID
     Dates: start: 20230211, end: 20230523
  36. CRIZOTINIB [Suspect]
     Active Substance: CRIZOTINIB
     Dosage: 220 MILLIGRAM, BID
     Route: 048
     Dates: start: 20230211, end: 20230523
  37. CRIZOTINIB [Suspect]
     Active Substance: CRIZOTINIB
     Route: 048
  38. CRIZOTINIB [Suspect]
     Active Substance: CRIZOTINIB
  39. CRIZOTINIB [Suspect]
     Active Substance: CRIZOTINIB
  40. CRIZOTINIB [Suspect]
     Active Substance: CRIZOTINIB
     Route: 048
  41. METOCLOPRAMIDE [Suspect]
     Active Substance: METOCLOPRAMIDE
     Indication: Nausea
     Dates: start: 20230301, end: 20230410
  42. METOCLOPRAMIDE [Suspect]
     Active Substance: METOCLOPRAMIDE
     Route: 048
     Dates: start: 20230301, end: 20230410
  43. METOCLOPRAMIDE [Suspect]
     Active Substance: METOCLOPRAMIDE
     Route: 048
     Dates: start: 20230301, end: 20230410
  44. METOCLOPRAMIDE [Suspect]
     Active Substance: METOCLOPRAMIDE
     Dates: start: 20230301, end: 20230410
  45. CHOLECALCIFEROL [Suspect]
     Active Substance: CHOLECALCIFEROL
     Indication: Prophylaxis
  46. CHOLECALCIFEROL [Suspect]
     Active Substance: CHOLECALCIFEROL
     Route: 048
  47. CHOLECALCIFEROL [Suspect]
     Active Substance: CHOLECALCIFEROL
     Route: 048
  48. CHOLECALCIFEROL [Suspect]
     Active Substance: CHOLECALCIFEROL
  49. Klysma sorbit [Concomitant]
     Indication: Constipation
  50. Klysma sorbit [Concomitant]
     Route: 054
  51. Klysma sorbit [Concomitant]
     Route: 054
  52. Klysma sorbit [Concomitant]

REACTIONS (8)
  - Sinus bradycardia [Not Recovered/Not Resolved]
  - Heart rate decreased [Unknown]
  - Electrocardiogram abnormal [Unknown]
  - Cyanosis [Unknown]
  - Constipation [Unknown]
  - Nausea [Unknown]
  - Product use in unapproved indication [Unknown]
  - Off label use [Unknown]

NARRATIVE: CASE EVENT DATE: 20230331
